FAERS Safety Report 24030794 (Version 2)
Quarter: 2024Q3

REPORT INFORMATION
  Report Type: Spontaneous
  Country: JP (occurrence: JP)
  Receive Date: 20240628
  Receipt Date: 20240712
  Transmission Date: 20241017
  Serious: Yes (Life-Threatening, Hospitalization)
  Sender: AKEBIA THERAPEUTICS
  Company Number: JP-JAPAN TOBACCO INC.-JT2024JP000252

PATIENT

DRUGS (14)
  1. FERRIC CITRATE ANHYDROUS [Suspect]
     Active Substance: FERRIC CITRATE ANHYDROUS
     Indication: Product used for unknown indication
     Dosage: 250 MILLIGRAM, TID
     Route: 048
  2. ENARODUSTAT [Suspect]
     Active Substance: ENARODUSTAT
     Indication: Nephrogenic anaemia
     Dosage: 2 MILLIGRAM, QD
     Route: 048
     Dates: start: 20231212, end: 20240531
  3. WARFARIN POTASSIUM [Suspect]
     Active Substance: WARFARIN POTASSIUM
     Indication: Atrial fibrillation
     Dosage: 1 MILLIGRAM, QD
     Route: 048
     Dates: end: 20240502
  4. FEBUXOSTAT [Concomitant]
     Active Substance: FEBUXOSTAT
     Indication: Hyperuricaemia
     Dosage: 20 MILLIGRAM, QD
     Route: 048
     Dates: end: 20240601
  5. AZOSEMIDE [Concomitant]
     Active Substance: AZOSEMIDE
     Indication: Nephrosclerosis
     Dosage: 60 MILLIGRAM, QD
     Route: 048
     Dates: end: 20240601
  6. SOLIFENACIN SUCCINATE [Concomitant]
     Active Substance: SOLIFENACIN SUCCINATE
     Indication: Hypertonic bladder
     Dosage: 5 MILLIGRAM, QD
     Route: 048
     Dates: end: 20240601
  7. SAMSCA [Concomitant]
     Active Substance: TOLVAPTAN
     Indication: Nephrosclerosis
     Dosage: 15 MILLIGRAM, QD
     Route: 048
     Dates: end: 20240601
  8. ENTRESTO [Concomitant]
     Active Substance: SACUBITRIL\VALSARTAN
     Indication: Cardiac failure chronic
     Dosage: 200 MILLIGRAM, BID
     Route: 048
     Dates: end: 20240527
  9. ENTRESTO [Concomitant]
     Active Substance: SACUBITRIL\VALSARTAN
     Indication: Hypertension
  10. JARDIANCE [Concomitant]
     Active Substance: EMPAGLIFLOZIN
     Indication: Cardiac failure chronic
     Dosage: 10 MILLIGRAM, QD
     Route: 048
  11. ESOMEPRAZOLE MAGNESIUM [Concomitant]
     Active Substance: ESOMEPRAZOLE MAGNESIUM
     Indication: Gastrooesophageal reflux disease
     Dosage: 20 MILLIGRAM, QD
     Route: 048
  12. AMITIZA [Concomitant]
     Active Substance: LUBIPROSTONE
     Indication: Constipation
     Dosage: 12 MICROGRAM, BID
     Route: 048
     Dates: start: 20240206
  13. TRICHLORMETHIAZIDE [Concomitant]
     Active Substance: TRICHLORMETHIAZIDE
     Indication: Nephrosclerosis
     Dosage: 1 MILLIGRAM, QD
     Route: 048
     Dates: start: 20240109, end: 20240601
  14. KREMEZIN [Concomitant]
     Active Substance: ACTIVATED CHARCOAL
     Indication: Nephrosclerosis
     Dosage: 500 MILLIGRAM, TID
     Route: 048
     Dates: end: 20240502

REACTIONS (1)
  - Calciphylaxis [Not Recovered/Not Resolved]

NARRATIVE: CASE EVENT DATE: 20240503
